FAERS Safety Report 25096000 (Version 3)
Quarter: 2025Q2

REPORT INFORMATION
  Report Type: Spontaneous
  Country: US (occurrence: US)
  Receive Date: 20250319
  Receipt Date: 20250429
  Transmission Date: 20250716
  Serious: Yes (Other)
  Sender: BAYER HEALTHCARE PHARMACEUTICALS INC.
  Company Number: US-BAYER-2025A034190

PATIENT
  Age: 89 Year
  Sex: Male

DRUGS (1)
  1. ADEMPAS [Suspect]
     Active Substance: RIOCIGUAT
     Indication: Pulmonary hypertension
     Dosage: 2.5 MG, TID
     Route: 048
     Dates: start: 20231227

REACTIONS (7)
  - Lung opacity [Recovering/Resolving]
  - Atelectasis [Recovering/Resolving]
  - Pneumonitis [Recovering/Resolving]
  - Respiratory distress [None]
  - Dyspnoea [Recovering/Resolving]
  - Fall [None]
  - Dizziness [None]

NARRATIVE: CASE EVENT DATE: 20250122
